FAERS Safety Report 17208471 (Version 2)
Quarter: 2020Q3

REPORT INFORMATION
  Report Type: Report from Study
  Country: CA (occurrence: CA)
  Receive Date: 20191227
  Receipt Date: 20200707
  Transmission Date: 20201102
  Serious: Yes (Hospitalization, Other)
  Sender: FDA-Public Use
  Company Number: CA-PFM-2019-15635

PATIENT

DRUGS (4)
  1. PROPRANOLOL HYDROCHLORIDE. [Suspect]
     Active Substance: PROPRANOLOL HYDROCHLORIDE
     Indication: OFF LABEL USE
  2. MAGNESIUM [Suspect]
     Active Substance: MAGNESIUM
     Indication: MIGRAINE
     Dosage: UNK
     Route: 065
  3. PROPRANOLOL HYDROCHLORIDE. [Suspect]
     Active Substance: PROPRANOLOL HYDROCHLORIDE
     Indication: MIGRAINE
     Dosage: UNK
     Route: 065
     Dates: start: 2018
  4. VENLAFAXINE [Suspect]
     Active Substance: VENLAFAXINE HYDROCHLORIDE
     Indication: MIGRAINE
     Dosage: UNK
     Route: 065
     Dates: start: 2018, end: 2018

REACTIONS (11)
  - Migraine [Unknown]
  - Underweight [Unknown]
  - Decreased appetite [Unknown]
  - Product administered to patient of inappropriate age [Unknown]
  - Loss of consciousness [Unknown]
  - Vomiting [Unknown]
  - Drug intolerance [Unknown]
  - Off label use [Unknown]
  - Product use in unapproved indication [Unknown]
  - Drug ineffective for unapproved indication [Unknown]
  - Dehydration [Unknown]
